FAERS Safety Report 11012114 (Version 2)
Quarter: 2015Q2

REPORT INFORMATION
  Report Type: Spontaneous
  Country: US (occurrence: US)
  Receive Date: 20150410
  Receipt Date: 20150525
  Transmission Date: 20150821
  Serious: Yes (Other)
  Sender: FDA-Public Use
  Company Number: US-JNJFOC-20131010663

PATIENT
  Sex: Female
  Weight: 68.04 kg

DRUGS (1)
  1. REMICADE [Suspect]
     Active Substance: INFLIXIMAB
     Indication: CROHN^S DISEASE
     Dosage: 4 INFUSION WAS RECEIVED SO FOR
     Route: 042
     Dates: start: 2001, end: 20021025

REACTIONS (3)
  - Drug hypersensitivity [Unknown]
  - Treatment failure [Unknown]
  - Anaphylactic reaction [Recovered/Resolved]
